FAERS Safety Report 18164722 (Version 1)
Quarter: 2020Q3

REPORT INFORMATION
  Report Type: Spontaneous
  Country: US (occurrence: US)
  Receive Date: 20200819
  Receipt Date: 20200819
  Transmission Date: 20201103
  Serious: No
  Sender: FDA-Public Use
  Company Number: US-009507513-2007USA007760

PATIENT
  Age: 70 Year
  Sex: Male

DRUGS (3)
  1. INTRON A [Suspect]
     Active Substance: INTERFERON ALFA-2B
     Indication: ERDHEIM-CHESTER DISEASE
     Dosage: UNKNOWN
  2. CYCLOSPORINE. [Concomitant]
     Active Substance: CYCLOSPORINE
     Indication: ERDHEIM-CHESTER DISEASE
  3. CORTICOSTEROIDS (UNSPECIFIED) [Concomitant]
     Active Substance: UNSPECIFIED INGREDIENT
     Indication: ERDHEIM-CHESTER DISEASE
     Dosage: HIGH?DOSE

REACTIONS (1)
  - Product use in unapproved indication [Unknown]
